FAERS Safety Report 5453749-6 (Version None)
Quarter: 2007Q3

REPORT INFORMATION
  Report Type: 
  Country: None (occurrence: None)
  Receive Date: 20070917
  Receipt Date: 20070907
  Transmission Date: 20080115
  Serious: Yes (Hospitalization)
  Sender: FDA-Public Use
  Company Number: US-ELI_LILLY_AND_COMPANY-US200709001535

PATIENT
  Age: 70 Year
  Sex: Female

DRUGS (7)
  1. FORTEO [Suspect]
     Indication: OSTEOPOROSIS
     Dosage: 20 UG, UNK
     Dates: start: 20061001
  2. EVISTA [Suspect]
     Dosage: 60 MG, DAILY (1/D)
  3. VITAMIN B COMPLEX WITH C [Concomitant]
  4. CENTRUM SILVER [Concomitant]
  5. SYNTHROID [Concomitant]
     Indication: HYPOTHYROIDISM
     Dosage: 100 UG, UNK
  6. SYNTHROID [Concomitant]
     Dosage: 88 UG, UNK
  7. SYNTHROID [Concomitant]
     Dosage: UNKNOWN

REACTIONS (15)
  - ABDOMINAL DISTENSION [None]
  - ASTIGMATISM [None]
  - BRONCHITIS [None]
  - CATARACT [None]
  - COUGH [None]
  - DIPLOPIA [None]
  - EYE DISCHARGE [None]
  - GASTROOESOPHAGEAL REFLUX DISEASE [None]
  - HYPERTHYROIDISM [None]
  - MEMORY IMPAIRMENT [None]
  - MULTIPLE ALLERGIES [None]
  - OCULAR FISTULA [None]
  - OSTEOPOROSIS [None]
  - STOMACH DISCOMFORT [None]
  - VISUAL ACUITY REDUCED [None]
